FAERS Safety Report 19712693 (Version 1)
Quarter: 2021Q3

REPORT INFORMATION
  Report Type: Spontaneous
  Country: CO (occurrence: CO)
  Receive Date: 20210817
  Receipt Date: 20210817
  Transmission Date: 20211014
  Serious: Yes (Other)
  Sender: FDA-Public Use
  Company Number: CO-BIOMARINAP-CO-2021-138114

PATIENT
  Age: 7 Year
  Sex: Female
  Weight: 21 kg

DRUGS (1)
  1. VIMIZIM [Suspect]
     Active Substance: ELOSULFASE ALFA
     Indication: MUCOPOLYSACCHARIDOSIS IV
     Dosage: 42 MILLIGRAM, QW
     Route: 042
     Dates: start: 20190606

REACTIONS (3)
  - Limb operation [Unknown]
  - Weight increased [Unknown]
  - Arthrogram [Unknown]

NARRATIVE: CASE EVENT DATE: 20210811
